FAERS Safety Report 23067224 (Version 2)
Quarter: 2023Q4

REPORT INFORMATION
  Report Type: Report from Study
  Country: US (occurrence: US)
  Receive Date: 20231016
  Receipt Date: 20231111
  Transmission Date: 20240110
  Serious: No
  Sender: FDA-Public Use
  Company Number: US-JNJFOC-20231029437

PATIENT
  Age: 75 Year
  Sex: Male

DRUGS (7)
  1. ERLEADA [Suspect]
     Active Substance: APALUTAMIDE
     Indication: Product used for unknown indication
     Route: 048
     Dates: start: 20221101, end: 20230925
  2. ATORVASTATIN [Concomitant]
     Active Substance: ATORVASTATIN
     Indication: Blood cholesterol
     Dates: start: 1998
  3. ASPIRIN [Concomitant]
     Active Substance: ASPIRIN
     Dates: start: 1998
  4. FISH OIL [Concomitant]
     Active Substance: FISH OIL
     Dates: start: 2010
  5. LUPRON [Concomitant]
     Active Substance: LEUPROLIDE ACETATE
     Indication: Prostate cancer
     Dosage: 90
  6. VITAMINS [Concomitant]
     Active Substance: VITAMINS
     Dates: start: 2000
  7. ASPIRIN [Concomitant]
     Active Substance: ASPIRIN
     Indication: Cardiac disorder

REACTIONS (10)
  - Swelling face [Unknown]
  - Asthenia [Unknown]
  - Abdominal pain upper [Unknown]
  - Abdominal distension [Unknown]
  - Penis disorder [Unknown]
  - Skin atrophy [Unknown]
  - Flushing [Unknown]
  - Frequent bowel movements [Unknown]
  - Muscle spasms [Unknown]
  - Off label use [Unknown]
